FAERS Safety Report 9146495 (Version 1)
Quarter: 2013Q1

REPORT INFORMATION
  Report Type: Spontaneous
  Country: US (occurrence: US)
  Receive Date: 20130307
  Receipt Date: 20130307
  Transmission Date: 20140127
  Serious: No
  Sender: FDA-Public Use
  Company Number: US-GLAXOSMITHKLINE-A0975572A

PATIENT
  Sex: Female

DRUGS (14)
  1. ROPINIROLE [Suspect]
     Indication: SLEEP DISORDER
     Route: 048
     Dates: start: 2011, end: 2011
  2. METHADONE [Concomitant]
  3. KLOR-CON [Concomitant]
  4. METFORMIN [Concomitant]
  5. AMITIZA [Concomitant]
  6. ALPRAZOLAM [Concomitant]
  7. FUROSEMIDE [Concomitant]
  8. SPIRONOLACTONE [Concomitant]
  9. ENABLEX [Concomitant]
  10. GABAPENTIN [Concomitant]
  11. FOLIC ACID [Concomitant]
  12. DOCUSATE [Concomitant]
  13. DEXILANT [Concomitant]
  14. ISOSORBIDE MONONITRATE [Concomitant]

REACTIONS (1)
  - Drug ineffective [Unknown]
